FAERS Safety Report 12569884 (Version 1)
Quarter: 2016Q3

REPORT INFORMATION
  Report Type: Spontaneous
  Country: RO (occurrence: None)
  Receive Date: 20160718
  Receipt Date: 20160718
  Transmission Date: 20161109
  Serious: Yes (Disabling)
  Sender: FDA-Public Use
  Company Number: None

PATIENT
  Age: 23 Year
  Sex: Male
  Weight: 77 kg

DRUGS (2)
  1. CONTROLOC [Suspect]
     Active Substance: PANTOPRAZOLE SODIUM
     Indication: GASTROOESOPHAGEAL REFLUX DISEASE
     Dosage: IN THE MORNING
     Dates: start: 20160311, end: 20160627
  2. BEARD GROWTH SUPPORT [Concomitant]

REACTIONS (11)
  - Stress [None]
  - Throat irritation [None]
  - Dyspepsia [None]
  - Dysgeusia [None]
  - Throat tightness [None]
  - Eructation [None]
  - Cough [None]
  - Gastrooesophageal reflux disease [None]
  - Abdominal pain upper [None]
  - Dysphonia [None]
  - Abdominal distension [None]

NARRATIVE: CASE EVENT DATE: 20160410
